FAERS Safety Report 14524264 (Version 1)
Quarter: 2018Q1

REPORT INFORMATION
  Report Type: Spontaneous
  Country: CN (occurrence: CN)
  Receive Date: 20180213
  Receipt Date: 20180213
  Transmission Date: 20180509
  Serious: Yes (Other)
  Sender: FDA-Public Use
  Company Number: CN-ROCHE-2065469

PATIENT
  Age: 39 Year
  Sex: Male
  Weight: 83 kg

DRUGS (4)
  1. DOXORUBICIN HYDROCHLORIDE. [Concomitant]
     Active Substance: DOXORUBICIN HYDROCHLORIDE
     Indication: NON-HODGKIN^S LYMPHOMA
     Route: 042
     Dates: start: 20171030, end: 20171031
  2. ENDOXAN [Suspect]
     Active Substance: CYCLOPHOSPHAMIDE
     Indication: NON-HODGKIN^S LYMPHOMA
     Route: 042
     Dates: start: 20171030, end: 20171030
  3. MABTHERA [Suspect]
     Active Substance: RITUXIMAB
     Indication: NON-HODGKIN^S LYMPHOMA
     Route: 042
     Dates: start: 20171029, end: 20171029
  4. XIAIKE [Concomitant]
     Active Substance: VINDESINE
     Indication: NON-HODGKIN^S LYMPHOMA
     Route: 042
     Dates: start: 20171030, end: 20171030

REACTIONS (2)
  - Traumatic lung injury [Not Recovered/Not Resolved]
  - Agranulocytosis [Unknown]

NARRATIVE: CASE EVENT DATE: 20171125
